FAERS Safety Report 4490534-6 (Version None)
Quarter: 2004Q4

REPORT INFORMATION
  Report Type: 
  Country: None (occurrence: None)
  Receive Date: 20041028
  Receipt Date: 20041014
  Transmission Date: 20050328
  Serious: Yes (Other)
  Sender: FDA-Public Use
  Company Number: K200401589

PATIENT
  Age: 63 Year
  Sex: Female
  Weight: 71.2 kg

DRUGS (8)
  1. LEVOXYL [Suspect]
     Indication: HYPOTHYROIDISM
     Dosage: SEE IMAGE
     Route: 048
     Dates: end: 20040501
  2. LEVOXYL [Suspect]
     Indication: HYPOTHYROIDISM
     Dosage: SEE IMAGE
     Route: 048
     Dates: start: 20040501, end: 20040712
  3. LEVOXYL [Suspect]
     Indication: HYPOTHYROIDISM
     Dosage: SEE IMAGE
     Route: 048
     Dates: start: 20040713
  4. PRAVACHOL [Concomitant]
  5. DICLOFENAC (DICLOFENAC) [Concomitant]
  6. TRENTAL [Concomitant]
  7. DARVOCET-N (DEXTROPROPOXYPHENE NAPSILATE, PARACETAMOL) [Concomitant]
  8. MIACALCIN [Concomitant]

REACTIONS (6)
  - BACK PAIN [None]
  - BLOOD THYROID STIMULATING HORMONE INCREASED [None]
  - DYSGEUSIA [None]
  - INSOMNIA [None]
  - MUSCLE SPASMS [None]
  - MYALGIA [None]
